FAERS Safety Report 5236161-4 (Version None)
Quarter: 2007Q1

REPORT INFORMATION
  Report Type: 
  Country: None (occurrence: None)
  Receive Date: 20070212
  Receipt Date: 20070130
  Transmission Date: 20070707
  Serious: Yes (Congenital Anomaly)
  Sender: FDA-Public Use
  Company Number: US-SHR-US-2007-004605

PATIENT

DRUGS (3)
  1. PRENATAL VITAMINS [Concomitant]
     Indication: SUPPLEMENTATION THERAPY
     Route: 064
     Dates: start: 20061031
  2. FOLIC ACID [Concomitant]
     Indication: SUPPLEMENTATION THERAPY
     Route: 064
  3. BETASERON [Suspect]
     Indication: MULTIPLE SCLEROSIS
     Dosage: .3 MG, EVERY 2D
     Route: 064
     Dates: end: 20061005

REACTIONS (1)
  - POLYDACTYLY [None]
